FAERS Safety Report 13595462 (Version 1)
Quarter: 2017Q2

REPORT INFORMATION
  Report Type: Spontaneous
  Country: GB (occurrence: GB)
  Receive Date: 20170531
  Receipt Date: 20170531
  Transmission Date: 20170830
  Serious: Yes (Other)
  Sender: FDA-Public Use
  Company Number: GB-SUN PHARMACEUTICAL INDUSTRIES LTD-2017RR-141439

PATIENT
  Age: 12 Year
  Sex: Female
  Weight: 45.7 kg

DRUGS (1)
  1. ISOTRETINOIN [Suspect]
     Active Substance: ISOTRETINOIN
     Indication: ACNE
     Dosage: 40 MG
     Route: 048
     Dates: start: 20161101, end: 20170425

REACTIONS (3)
  - Tearfulness [Recovering/Resolving]
  - Depressed mood [Recovering/Resolving]
  - Childhood depression [Recovering/Resolving]

NARRATIVE: CASE EVENT DATE: 20170315
